FAERS Safety Report 18104552 (Version 2)
Quarter: 2020Q3

REPORT INFORMATION
  Report Type: Spontaneous
  Country: KR (occurrence: KR)
  Receive Date: 20200803
  Receipt Date: 20200817
  Transmission Date: 20201103
  Serious: Yes (Other)
  Sender: FDA-Public Use
  Company Number: KR-JNJFOC-20200735105

PATIENT
  Age: 26 Year
  Sex: Female
  Weight: 60 kg

DRUGS (6)
  1. REMICADE [Suspect]
     Active Substance: INFLIXIMAB
     Dosage: DE?ESCALATION
     Route: 042
     Dates: start: 201709
  2. AZATHIOPRINE. [Concomitant]
     Active Substance: AZATHIOPRINE
     Indication: CROHN^S DISEASE
     Route: 048
     Dates: start: 201310
  3. REMICADE [Suspect]
     Active Substance: INFLIXIMAB
     Indication: CROHN^S DISEASE
     Dosage: 0,2,6 WEEK
     Route: 042
     Dates: start: 2006
  4. REMICADE [Suspect]
     Active Substance: INFLIXIMAB
     Dosage: 0,2,6 WEEK
     Route: 042
     Dates: start: 200903, end: 201408
  5. REMICADE [Suspect]
     Active Substance: INFLIXIMAB
     Dosage: DOSE INTENSIFICATION
     Route: 042
     Dates: start: 201409
  6. MESALAMINE. [Concomitant]
     Active Substance: MESALAMINE
     Indication: CROHN^S DISEASE
     Route: 048

REACTIONS (2)
  - Drug ineffective [Unknown]
  - Large intestinal stenosis [Recovered/Resolved]

NARRATIVE: CASE EVENT DATE: 201310
